FAERS Safety Report 19889630 (Version 1)
Quarter: 2021Q3

REPORT INFORMATION
  Report Type: Report from Study
  Country: DE (occurrence: DE)
  Receive Date: 20210927
  Receipt Date: 20210927
  Transmission Date: 20211014
  Serious: Yes (Death, Hospitalization, Other)
  Sender: FDA-Public Use
  Company Number: DE-MYLANLABS-2021M1066611

PATIENT
  Age: 40 Year
  Sex: Female
  Weight: 108 kg

DRUGS (106)
  1. PREDNISOLONE. [Suspect]
     Active Substance: PREDNISOLONE
     Dosage: 5 MILLIGRAM, QD
     Route: 048
     Dates: start: 20180219, end: 20180225
  2. COBIMETINIB. [Suspect]
     Active Substance: COBIMETINIB
     Indication: MALIGNANT MELANOMA
     Dosage: 60 MILLIGRAM, QD
     Route: 048
     Dates: start: 20180121
  3. DEXAMETHASONE. [Suspect]
     Active Substance: DEXAMETHASONE
     Dosage: 4 MILLIGRAM
     Route: 048
     Dates: start: 20180317, end: 20180324
  4. VEMURAFENIB. [Suspect]
     Active Substance: VEMURAFENIB
     Dosage: 960 MILLIGRAM
     Route: 048
     Dates: start: 20180308, end: 20180316
  5. KALINOR                            /00279301/ [Concomitant]
     Active Substance: CITRIC ACID MONOHYDRATE\POTASSIUM BICARBONATE\POTASSIUM CITRATE
     Indication: HYPOKALAEMIA
     Dosage: 2000 MILLIGRAM, QD
     Route: 048
     Dates: start: 20180404, end: 20180405
  6. NEUROCIL                           /00038602/ [Concomitant]
     Active Substance: LEVOMEPROMAZINE MALEATE
     Indication: RESTLESSNESS
     Dosage: 3 GTT DROPS
     Route: 048
     Dates: start: 20180408, end: 20180408
  7. DIMENHYDRINAT [Concomitant]
     Active Substance: DIMENHYDRINATE
     Dosage: 50 MILLIGRAM, 0.33 DAYS
     Route: 048
     Dates: start: 20180405, end: 20180415
  8. DIMENHYDRINAT [Concomitant]
     Active Substance: DIMENHYDRINATE
     Dosage: 150 MILLIGRAM, QD
     Route: 054
     Dates: start: 20180401, end: 20180401
  9. PICOSALAX [Concomitant]
     Active Substance: ANHYDROUS CITRIC ACID\MAGNESIUM OXIDE\SODIUM PICOSULFATE
     Indication: CONSTIPATION
     Dosage: 10 GTT DROPS, QD
     Route: 048
     Dates: start: 20180406, end: 20180415
  10. PICOSALAX [Concomitant]
     Active Substance: ANHYDROUS CITRIC ACID\MAGNESIUM OXIDE\SODIUM PICOSULFATE
     Dosage: 16 GTT DROPS, QD
     Route: 048
     Dates: start: 20180408, end: 20180408
  11. MIDAZOLAM. [Concomitant]
     Active Substance: MIDAZOLAM
     Dosage: 3 GTT DROPS, QD
     Route: 048
     Dates: start: 20180408, end: 20180408
  12. RINGERS SOLUTION [Concomitant]
     Active Substance: CALCIUM CHLORIDE\POTASSIUM CHLORIDE\SODIUM CHLORIDE
     Indication: GENERAL PHYSICAL HEALTH DETERIORATION
     Dosage: 500 MILLILITER, QD
     Route: 042
     Dates: start: 20180325, end: 20180325
  13. THYMIAN [Concomitant]
     Indication: COUGH
     Dosage: 20 MILLIGRAM
     Route: 048
     Dates: start: 20180329, end: 20180404
  14. IBUPROFEN. [Concomitant]
     Active Substance: IBUPROFEN
     Indication: GROIN PAIN
     Dosage: 400 MILLIGRAM, QD
     Route: 048
     Dates: start: 20180324, end: 20180324
  15. IBUPROFEN. [Concomitant]
     Active Substance: IBUPROFEN
     Dosage: 400 MILLIGRAM
     Route: 048
     Dates: start: 20180321, end: 20180323
  16. PANTOPRAZOL                        /01263201/ [Concomitant]
     Active Substance: PANTOPRAZOLE
     Indication: GASTROINTESTINAL DISORDER PROPHYLAXIS
     Dosage: 40 MILLIGRAM, QD
     Route: 048
     Dates: start: 20170901, end: 20180415
  17. HEPARIN [Concomitant]
     Active Substance: HEPARIN SODIUM
     Dosage: 5000 INTERNATIONAL UNIT
     Route: 058
     Dates: start: 20180319, end: 20180328
  18. PREDNISOLONE. [Suspect]
     Active Substance: PREDNISOLONE
     Dosage: 15 MILLIGRAM, QD
     Route: 048
     Dates: start: 20180205, end: 20180211
  19. DEXAMETHASONE. [Suspect]
     Active Substance: DEXAMETHASONE
     Indication: METASTASES TO CENTRAL NERVOUS SYSTEM
     Dosage: 4 MILLIGRAM, QOD
     Route: 048
     Dates: start: 20180202, end: 20180207
  20. DEXAMETHASONE. [Suspect]
     Active Substance: DEXAMETHASONE
     Dosage: 8 MILLIGRAM, QD
     Route: 048
     Dates: start: 20180412, end: 20180413
  21. VEMURAFENIB. [Suspect]
     Active Substance: VEMURAFENIB
     Dosage: 960 MILLIGRAM, QD
     Route: 048
     Dates: start: 20180216, end: 20180216
  22. KALINOR                            /00279301/ [Concomitant]
     Active Substance: CITRIC ACID MONOHYDRATE\POTASSIUM BICARBONATE\POTASSIUM CITRATE
     Indication: HYPOCALCAEMIA
     Dosage: 2000 MILLIGRAM, 0.5 DAYS
     Route: 048
     Dates: start: 20180324, end: 20180326
  23. DIMENHYDRINAT [Concomitant]
     Active Substance: DIMENHYDRINATE
     Dosage: 150 MILLIGRAM
     Route: 054
     Dates: start: 20180402, end: 20180402
  24. DIMENHYDRINAT [Concomitant]
     Active Substance: DIMENHYDRINATE
     Dosage: 50 MILLIGRAM
     Route: 048
     Dates: start: 20180404, end: 20180404
  25. HYDROMORPHONE [Concomitant]
     Active Substance: HYDROMORPHONE
     Indication: HEADACHE
     Dosage: 0.5 MILLIGRAM, QD
     Route: 058
     Dates: start: 20180413, end: 20180413
  26. HYDROMORPHONE [Concomitant]
     Active Substance: HYDROMORPHONE
     Dosage: 2 MILLIGRAM, 0.5 DAYS
     Route: 048
     Dates: start: 20180410, end: 20180414
  27. HYDROMORPHONE [Concomitant]
     Active Substance: HYDROMORPHONE
     Dosage: 0.1 MILLIGRAM
     Route: 058
     Dates: start: 20180418, end: 20180421
  28. NOVALGIN (METAMIZOLE SODIUM) [Concomitant]
     Active Substance: METAMIZOLE SODIUM
     Dosage: UNK
     Route: 048
     Dates: start: 20180318, end: 20180318
  29. CODEIN [Concomitant]
     Active Substance: CODEINE
     Indication: COUGH
     Dosage: 30 GTT DROPS, QD
     Route: 065
     Dates: start: 20180329, end: 20180329
  30. RINGERS SOLUTION [Concomitant]
     Active Substance: CALCIUM CHLORIDE\POTASSIUM CHLORIDE\SODIUM CHLORIDE
     Dosage: 500 MILLILITER, QD
     Route: 042
     Dates: start: 20180320, end: 20180323
  31. LORAZEPAM. [Concomitant]
     Active Substance: LORAZEPAM
     Dosage: 1 MILLIGRAM, QD
     Route: 048
     Dates: start: 20180411, end: 20180411
  32. ATROVENT [Concomitant]
     Active Substance: IPRATROPIUM BROMIDE
     Indication: COUGH
     Dosage: UNK
     Route: 055
     Dates: start: 20180330, end: 20180404
  33. PREDNISOLONE. [Suspect]
     Active Substance: PREDNISOLONE
     Indication: PNEUMONITIS
     Dosage: 20 MILLIGRAM, QD
     Route: 048
     Dates: start: 20180129, end: 20180204
  34. PREDNISOLONE. [Suspect]
     Active Substance: PREDNISOLONE
     Dosage: 10 MILLIGRAM, QD
     Route: 048
     Dates: start: 20180212, end: 20180218
  35. COBIMETINIB. [Suspect]
     Active Substance: COBIMETINIB
     Dosage: 60 MILLIGRAM, QD
     Route: 048
     Dates: start: 20180202, end: 20180215
  36. DEXAMETHASONE. [Suspect]
     Active Substance: DEXAMETHASONE
     Dosage: 2 MILLIGRAM
     Route: 048
     Dates: start: 20180325, end: 20180328
  37. DIMENHYDRINAT [Concomitant]
     Active Substance: DIMENHYDRINATE
     Dosage: 50 MILLIGRAM
     Route: 048
     Dates: start: 20180330, end: 20180401
  38. HYDROMORPHONE [Concomitant]
     Active Substance: HYDROMORPHONE
     Dosage: 1.3 MILLIGRAM, 0.5 DAYS
     Route: 048
     Dates: start: 20180405, end: 20180405
  39. CODEIN [Concomitant]
     Active Substance: CODEINE
     Dosage: 30 GTT DROPS, QD
     Route: 048
     Dates: start: 20180331, end: 20180331
  40. LORAZEPAM. [Concomitant]
     Active Substance: LORAZEPAM
     Indication: RESTLESSNESS
     Dosage: 1 MILLIGRAM
     Route: 048
     Dates: start: 20180417, end: 20180417
  41. METOCLOPRAMID                      /00041901/ [Concomitant]
     Active Substance: METOCLOPRAMIDE
     Indication: NAUSEA
     Dosage: 10 MILLIGRAM, QD
     Route: 048
     Dates: start: 20180318, end: 20180318
  42. THYMIAN [Concomitant]
     Indication: COUGH
     Dosage: 20 MILLILITER, QD
     Route: 048
     Dates: start: 20180327, end: 20180327
  43. COBIMETINIB. [Suspect]
     Active Substance: COBIMETINIB
     Dosage: 60 MILLIGRAM, QD
     Route: 048
     Dates: start: 20180308, end: 20180316
  44. DEXAMETHASONE. [Suspect]
     Active Substance: DEXAMETHASONE
     Dosage: 8 MILLIGRAM, QD
     Route: 048
     Dates: start: 20180409, end: 20180411
  45. DEXAMETHASONE. [Suspect]
     Active Substance: DEXAMETHASONE
     Dosage: 4 MILLIGRAM, QD
     Route: 048
     Dates: start: 20180321, end: 20180321
  46. VEMURAFENIB. [Suspect]
     Active Substance: VEMURAFENIB
     Dosage: 960 MILLIGRAM
     Route: 048
     Dates: start: 20180220, end: 20180222
  47. VEMURAFENIB. [Suspect]
     Active Substance: VEMURAFENIB
     Dosage: 960 MILLIGRAM, QD
     Route: 048
     Dates: start: 20180220, end: 20180222
  48. KALINOR                            /00279301/ [Concomitant]
     Active Substance: CITRIC ACID MONOHYDRATE\POTASSIUM BICARBONATE\POTASSIUM CITRATE
     Dosage: 2000 MILLIGRAM, 0.5 DAYS
     Route: 048
     Dates: start: 20180323, end: 20180323
  49. NEUROCIL                           /00038602/ [Concomitant]
     Active Substance: LEVOMEPROMAZINE MALEATE
     Dosage: 4 GTT DROPS, QD
     Route: 058
     Dates: start: 20180413, end: 20180413
  50. DIMENHYDRINAT [Concomitant]
     Active Substance: DIMENHYDRINATE
     Indication: NAUSEA
     Dosage: 62 MILLIGRAM, QD
     Route: 042
     Dates: start: 20180403, end: 20180403
  51. HYDROMORPHONE [Concomitant]
     Active Substance: HYDROMORPHONE
     Dosage: 1.3 MILLIGRAM, 0.33 DAYS
     Route: 048
     Dates: start: 20180409, end: 20180409
  52. METAMIZOLE [Concomitant]
     Active Substance: METAMIZOLE
     Indication: NECK PAIN
     Dosage: 2.5 GRAM, QD
     Route: 058
     Dates: start: 20180416, end: 20180418
  53. NOVALGIN (METAMIZOLE SODIUM) [Concomitant]
     Active Substance: METAMIZOLE SODIUM
     Indication: GROIN PAIN
     Dosage: UNK
     Route: 048
     Dates: start: 20180317, end: 20180317
  54. CODEIN [Concomitant]
     Active Substance: CODEINE
     Dosage: 30 GTT DROPS
     Route: 048
     Dates: start: 20180404, end: 20180404
  55. PARACETAMOL [Concomitant]
     Active Substance: ACETAMINOPHEN
     Indication: PYREXIA
     Dosage: 1 GRAM
     Route: 042
     Dates: start: 20180318, end: 20180318
  56. ONDANSETRON [Concomitant]
     Active Substance: ONDANSETRON
     Indication: NAUSEA
     Dosage: 8 MILLIGRAM, QD
     Route: 048
     Dates: start: 20180329, end: 20180329
  57. LEVETIRACETAM. [Concomitant]
     Active Substance: LEVETIRACETAM
     Dosage: 1500 MILLIGRAM
     Route: 048
     Dates: start: 20171101, end: 20180323
  58. LEVETIRACETAM. [Concomitant]
     Active Substance: LEVETIRACETAM
     Dosage: 1000 MILLIGRAM, QD
     Route: 048
     Dates: start: 20180415, end: 20180415
  59. TAVOR (LORAZEPAM) [Concomitant]
     Active Substance: LORAZEPAM
     Dosage: 2.5 MILLIGRAM, QD
     Route: 058
     Dates: start: 20180415, end: 20180416
  60. CEFUROXIM                          /00454601/ [Concomitant]
     Active Substance: CEFUROXIME
     Indication: GROIN PAIN
     Dosage: 1.5 GRAM
     Route: 042
     Dates: start: 20180301, end: 20180304
  61. COBIMETINIB. [Suspect]
     Active Substance: COBIMETINIB
     Dosage: 60 MILLIGRAM, QD
     Route: 048
     Dates: start: 20180220, end: 20180222
  62. DEXAMETHASONE. [Suspect]
     Active Substance: DEXAMETHASONE
     Dosage: 4 MILLIGRAM, QD
     Route: 048
     Dates: start: 20180201, end: 20180201
  63. DEXAMETHASONE. [Suspect]
     Active Substance: DEXAMETHASONE
     Dosage: 12 MILLIGRAM, QD
     Route: 058
     Dates: start: 20180417
  64. VEMURAFENIB. [Suspect]
     Active Substance: VEMURAFENIB
     Dosage: 960 MILLIGRAM
     Route: 048
     Dates: start: 20180216, end: 20180216
  65. DALTEPARIN [Concomitant]
     Active Substance: DALTEPARIN
     Dosage: 5000 INTERNATIONAL UNIT, QD
     Route: 058
     Dates: start: 20180329, end: 20180415
  66. DIMENHYDRINAT [Concomitant]
     Active Substance: DIMENHYDRINATE
     Dosage: 62 MILLIGRAM, QD
     Route: 042
     Dates: start: 20180330, end: 20180331
  67. HYDROMORPHONE [Concomitant]
     Active Substance: HYDROMORPHONE
     Dosage: 1.3 MILLIGRAM
     Route: 058
     Dates: start: 20180413, end: 20180413
  68. MIDAZOLAM. [Concomitant]
     Active Substance: MIDAZOLAM
     Indication: RESTLESSNESS
     Dosage: 1 MILLIGRAM
     Route: 058
     Dates: start: 20180417, end: 20180418
  69. MIDAZOLAM. [Concomitant]
     Active Substance: MIDAZOLAM
     Dosage: 2 MILLIGRAM
     Route: 058
     Dates: start: 20180419, end: 20180421
  70. OTRIVEN [Concomitant]
     Active Substance: XYLOMETAZOLINE HYDROCHLORIDE
     Indication: DYSPNOEA
     Dosage: 1 GTT DROPS, QD
     Route: 045
     Dates: start: 20180415, end: 20180415
  71. DEXAMETHASONE. [Suspect]
     Active Substance: DEXAMETHASONE
     Dosage: 12 MILLIGRAM, QD
     Route: 048
     Dates: start: 20180414, end: 20180416
  72. DEXAMETHASONE. [Suspect]
     Active Substance: DEXAMETHASONE
     Dosage: 4 MILLIGRAM, QD
     Route: 048
     Dates: start: 20180208, end: 20180214
  73. PERFALGAN [Concomitant]
     Active Substance: ACETAMINOPHEN
     Dosage: 1 GRAM, QD
     Route: 042
     Dates: start: 20180301, end: 20180302
  74. HYDROMORPHONE [Concomitant]
     Active Substance: HYDROMORPHONE
     Dosage: 2 MILLIGRAM, QD
     Route: 048
     Dates: start: 20180415, end: 20180415
  75. HYDROMORPHONE [Concomitant]
     Active Substance: HYDROMORPHONE
     Dosage: 0.05 MILLIGRAM
     Route: 058
     Dates: start: 20180416, end: 20180417
  76. METAMIZOLE [Concomitant]
     Active Substance: METAMIZOLE
     Dosage: 5 GRAM, QD
     Route: 058
     Dates: start: 20180417, end: 20180421
  77. CODEIN [Concomitant]
     Active Substance: CODEINE
     Dosage: 30 GTT DROPS, QD
     Route: 048
     Dates: start: 20180402, end: 20180402
  78. POTASSIUM [Concomitant]
     Active Substance: POTASSIUM
     Indication: HYPOKALAEMIA
     Dosage: UNK
     Route: 048
     Dates: start: 20180412, end: 20180416
  79. ONDASETRON                         /00955301/ [Concomitant]
     Active Substance: ONDANSETRON
     Indication: NAUSEA
     Dosage: 8 MILLIGRAM, QD
     Route: 042
     Dates: start: 20180402, end: 20180402
  80. LEVETIRACETAM. [Concomitant]
     Active Substance: LEVETIRACETAM
     Indication: EPILEPSY
     Dosage: 1 GRAM, QD
     Route: 058
     Dates: start: 20180421, end: 20180421
  81. TAVOR (LORAZEPAM) [Concomitant]
     Active Substance: LORAZEPAM
     Indication: RESTLESSNESS
     Dosage: 1 MILLIGRAM, QD
     Route: 058
     Dates: start: 20180416, end: 20180416
  82. DEXAMETHASONE. [Suspect]
     Active Substance: DEXAMETHASONE
     Dosage: 4 MILLIGRAM, QD
     Route: 048
     Dates: start: 20180315, end: 20180315
  83. THIAMIN                            /00056101/ [Concomitant]
     Active Substance: THIAMINE
     Dosage: 100 MILLIGRAM, 0.5 DAY
     Route: 048
     Dates: start: 20180411, end: 20180416
  84. HYDROMORPHONE [Concomitant]
     Active Substance: HYDROMORPHONE
     Dosage: 0.1 MILLIGRAM, 0.5 DAY
     Route: 058
     Dates: start: 20180418, end: 20180419
  85. HYDROMORPHONE [Concomitant]
     Active Substance: HYDROMORPHONE
     Dosage: 1.3 MILLIGRAM, 0.33 DAYS
     Route: 048
     Dates: start: 20180406, end: 20180408
  86. PICOSALAX [Concomitant]
     Active Substance: ANHYDROUS CITRIC ACID\MAGNESIUM OXIDE\SODIUM PICOSULFATE
     Indication: CONSTIPATION
     Dosage: 10 GTT DROPS, QD
     Route: 048
     Dates: start: 20180401, end: 20180402
  87. PICOSALAX [Concomitant]
     Active Substance: ANHYDROUS CITRIC ACID\MAGNESIUM OXIDE\SODIUM PICOSULFATE
     Dosage: 18 GTT DROPS
     Route: 048
     Dates: start: 20180409, end: 20180414
  88. METAMIZOLE [Concomitant]
     Active Substance: METAMIZOLE
     Indication: PYREXIA
     Dosage: 30 GTT DROPS, QD
     Route: 048
     Dates: start: 20180321, end: 20180321
  89. SYMBICORT [Concomitant]
     Active Substance: BUDESONIDE\FORMOTEROL FUMARATE DIHYDRATE
     Indication: ASTHMA
     Dosage: 160 MILLIGRAM, QOD
     Route: 048
     Dates: start: 20120101, end: 20180404
  90. MIDAZOLAM. [Concomitant]
     Active Substance: MIDAZOLAM
     Dosage: 2 MILLIGRAM, QD
     Route: 058
     Dates: start: 20180420, end: 20180420
  91. RINGERS SOLUTION [Concomitant]
     Active Substance: CALCIUM CHLORIDE\POTASSIUM CHLORIDE\SODIUM CHLORIDE
     Dosage: 500 MILLILITER
     Route: 042
     Dates: start: 20180324, end: 20180324
  92. SULTANOL [Concomitant]
     Active Substance: ALBUTEROL SULFATE
     Indication: COUGH
     Dosage: UNK
     Route: 055
     Dates: start: 20180330, end: 20180404
  93. PARACETAMOL [Concomitant]
     Active Substance: ACETAMINOPHEN
     Dosage: 1 GRAM, QD
     Route: 042
     Dates: start: 20180321, end: 20190322
  94. THYMIAN [Concomitant]
     Dosage: 20 MILLILITER
     Route: 048
     Dates: start: 20180328, end: 20180328
  95. MAGNETRANS FORTE [Concomitant]
     Active Substance: MAGNESIUM OXIDE
     Dosage: 150 MILLIGRAM, QD
     Route: 048
     Dates: start: 20180318, end: 20180318
  96. TAVOR (LORAZEPAM) [Concomitant]
     Active Substance: LORAZEPAM
     Dosage: 1 MILLIGRAM, QD
     Route: 058
     Dates: start: 20180417, end: 20180417
  97. CEFUROXIM                          /00454601/ [Concomitant]
     Active Substance: CEFUROXIME
     Dosage: 1.5 MILLIGRAM
     Route: 042
     Dates: start: 20180305, end: 20180305
  98. CEFUROXIM                          /00454601/ [Concomitant]
     Active Substance: CEFUROXIME
     Dosage: 500 MILLIGRAM
     Route: 048
     Dates: start: 20180306
  99. VEMURAFENIB. [Suspect]
     Active Substance: VEMURAFENIB
     Indication: MALIGNANT MELANOMA
     Dosage: 960 MILLIGRAM
     Route: 048
     Dates: start: 20180202, end: 20180215
  100. IBEROGAST [Concomitant]
     Active Substance: HERBALS
     Indication: NAUSEA
     Dosage: 20 GTT DROPS
     Route: 065
     Dates: start: 20180312, end: 20180315
  101. HYDROMORPHONE [Concomitant]
     Active Substance: HYDROMORPHONE
     Dosage: 0.05 MILLIGRAM, QD
     Route: 058
     Dates: start: 20180416, end: 20180416
  102. HYDROMORPHONE [Concomitant]
     Active Substance: HYDROMORPHONE
     Dosage: 2 MILLIGRAM, QD
     Route: 048
     Dates: start: 20180409, end: 20180409
  103. HYDROMORPHONE [Concomitant]
     Active Substance: HYDROMORPHONE
     Dosage: 0.5 MILLIGRAM
     Route: 058
     Dates: start: 20180415, end: 20180415
  104. METAMIZOLE [Concomitant]
     Active Substance: METAMIZOLE
     Dosage: 30 GTT DROPS, QD
     Route: 048
     Dates: start: 20180404, end: 20180404
  105. LEVETIRACETAM. [Concomitant]
     Active Substance: LEVETIRACETAM
     Dosage: 1 GRAM
     Route: 058
     Dates: start: 20180415, end: 20180420
  106. LEVETIRACETAM. [Concomitant]
     Active Substance: LEVETIRACETAM
     Dosage: 1000 MILLIGRAM, QD
     Route: 048
     Dates: start: 20180324, end: 20180414

REACTIONS (5)
  - Death [Fatal]
  - Nervous system disorder [Not Recovered/Not Resolved]
  - Organic brain syndrome [Not Recovered/Not Resolved]
  - Coma [Not Recovered/Not Resolved]
  - Disorientation [Not Recovered/Not Resolved]

NARRATIVE: CASE EVENT DATE: 20180322
